FAERS Safety Report 23777344 (Version 1)
Quarter: 2024Q2

REPORT INFORMATION
  Report Type: Spontaneous
  Country: US (occurrence: US)
  Receive Date: 20240424
  Receipt Date: 20240424
  Transmission Date: 20240715
  Serious: No
  Sender: FDA-Public Use
  Company Number: US-BRISTOL-MYERS SQUIBB COMPANY-2024-064055

PATIENT
  Age: 60 Year
  Sex: Female

DRUGS (1)
  1. CAMZYOS [Suspect]
     Active Substance: MAVACAMTEN
     Indication: Chronic myeloid leukaemia
     Route: 048
     Dates: start: 202102

REACTIONS (1)
  - Rash pruritic [Unknown]
